FAERS Safety Report 9997873 (Version 1)
Quarter: 2014Q1

REPORT INFORMATION
  Report Type: Spontaneous
  Country: FR (occurrence: FR)
  Receive Date: 20140311
  Receipt Date: 20140311
  Transmission Date: 20141002
  Serious: Yes (Other)
  Sender: FDA-Public Use
  Company Number: FR-PFIZER INC-2014067581

PATIENT
  Age: 62 Year
  Sex: Female

DRUGS (10)
  1. METHYLPREDNISOLONE [Suspect]
     Dosage: 100 MG, CYCLIC
     Route: 042
     Dates: start: 20140123, end: 20140123
  2. METHYLPREDNISOLONE [Suspect]
     Dosage: 100 MG, CYCLIC
     Route: 042
     Dates: start: 20140219, end: 20140219
  3. NOVATREX [Suspect]
     Dosage: 12.5 MG, WEEKLY
     Route: 048
  4. SPIRONOLACTONE ALTIZIDE ARROW [Suspect]
     Dosage: 25/15/MG A DAY
     Route: 048
  5. MABTHERA [Suspect]
     Dosage: UNK
     Route: 042
     Dates: start: 20140123, end: 20140123
  6. MABTHERA [Suspect]
     Dosage: UNK
     Route: 042
     Dates: start: 20140219, end: 20140219
  7. CORTANCYL [Suspect]
     Dosage: 5 MG, DAILY
     Route: 048
  8. LEVOTHYROX [Suspect]
     Dosage: 100 UG, DAILY
     Route: 048
  9. SPECIAFOLDINE [Suspect]
     Dosage: 3 DF, WEEKLY
     Route: 048
  10. EFFERALGAN [Concomitant]
     Dosage: UNK, AS NEEDED

REACTIONS (1)
  - Transient ischaemic attack [Recovered/Resolved]
